FAERS Safety Report 7975673-7 (Version None)
Quarter: 2011Q4

REPORT INFORMATION
  Report Type: 
  Country: None (occurrence: None)
  Receive Date: 20111213
  Receipt Date: 20111006
  Transmission Date: 20120403
  Serious: No
  Sender: FDA-Public Use
  Company Number: US-AMGEN-USASP2011049517

PATIENT
  Age: 55 Year
  Sex: Female

DRUGS (2)
  1. ENBREL [Suspect]
     Indication: RHEUMATOID ARTHRITIS
     Dosage: 50 MG, QWK
     Dates: start: 20110915, end: 20110915
  2. METHOTREXATE [Concomitant]
     Dates: start: 20090101

REACTIONS (5)
  - FATIGUE [None]
  - PRURITUS [None]
  - NAUSEA [None]
  - HOT FLUSH [None]
  - ABDOMINAL PAIN UPPER [None]
